FAERS Safety Report 7896753-0 (Version None)
Quarter: 2011Q4

REPORT INFORMATION
  Report Type: 
  Country: None (occurrence: None)
  Receive Date: 20111107
  Receipt Date: 20111028
  Transmission Date: 20120403
  Serious: No
  Sender: FDA-Public Use
  Company Number: US-BIOGENIDEC-2011BI041618

PATIENT
  Age: 32 Year
  Sex: Female

DRUGS (1)
  1. TYSABRI [Suspect]
     Indication: MULTIPLE SCLEROSIS
     Route: 042
     Dates: start: 20110323

REACTIONS (11)
  - MUSCULOSKELETAL STIFFNESS [None]
  - PARAESTHESIA [None]
  - HEAD INJURY [None]
  - MULTIPLE SCLEROSIS [None]
  - MUSCLE SPASMS [None]
  - GAIT DISTURBANCE [None]
  - DRUG INEFFECTIVE [None]
  - HYPOAESTHESIA [None]
  - FALL [None]
  - MUSCULAR WEAKNESS [None]
  - URINARY INCONTINENCE [None]
